FAERS Safety Report 9695987 (Version 1)
Quarter: 2013Q4

REPORT INFORMATION
  Report Type: Spontaneous
  Country: US (occurrence: US)
  Receive Date: 20131119
  Receipt Date: 20131119
  Transmission Date: 20140711
  Serious: No
  Sender: FDA-Public Use
  Company Number: US-VERTEX PHARMACEUTICALS INC-2013-011108

PATIENT
  Sex: Male

DRUGS (4)
  1. INCIVEK [Suspect]
     Indication: HEPATITIS C
     Dosage: ID750 MG, TID
     Route: 048
     Dates: start: 20131005
  2. COPEGUS [Suspect]
     Indication: HEPATITIS C
     Dosage: 1200 MG, QD
     Route: 048
     Dates: start: 20131005
  3. COPEGUS [Suspect]
     Dosage: 600 UNK, UNK
     Route: 048
  4. PEGASYS [Suspect]
     Indication: HEPATITIS C
     Dosage: 180 ?G, QW
     Route: 058
     Dates: start: 20131005

REACTIONS (2)
  - Eating disorder [Not Recovered/Not Resolved]
  - Anaemia [Not Recovered/Not Resolved]
